FAERS Safety Report 7431892-X (Version None)
Quarter: 2011Q2

REPORT INFORMATION
  Report Type: 
  Country: None (occurrence: None)
  Receive Date: 20110419
  Receipt Date: 20110419
  Transmission Date: 20111010
  Serious: No
  Sender: FDA-Public Use
  Company Number: None

PATIENT
  Sex: Male
  Weight: 27.2 kg

DRUGS (8)
  1. THIOGUANINE [Suspect]
     Dosage: 760 MG
     Dates: end: 20110406
  2. VINCRISTINE SULFATE [Suspect]
     Dosage: 6 MG
     Dates: end: 20110415
  3. PEG-L-ASPARAGINASE (PEGASPARGASE, ONCOSPAR) [Suspect]
     Dosage: 3450 IU
     Dates: end: 20110415
  4. METHOTREXATE [Suspect]
     Dosage: 45 MG
     Dates: end: 20110401
  5. CYCLOPHOSPHAMIDE [Suspect]
     Dosage: 950 MG
     Dates: end: 20110325
  6. DEXAMETHASONE [Suspect]
     Dosage: 140 MG
     Dates: end: 20110217
  7. DOXORUBICIN HCL [Suspect]
     Dosage: 75 MG
     Dates: end: 20110211
  8. CYTARABINE [Suspect]
     Dosage: 560 MG
     Dates: end: 20110404

REACTIONS (4)
  - INFUSION RELATED REACTION [None]
  - URTICARIA [None]
  - WHEEZING [None]
  - COUGH [None]
